FAERS Safety Report 19068053 (Version 1)
Quarter: 2021Q1

REPORT INFORMATION
  Report Type: Spontaneous
  Country: US (occurrence: US)
  Receive Date: 20210329
  Receipt Date: 20210329
  Transmission Date: 20210420
  Serious: Yes (Life-Threatening, Hospitalization, Other)
  Sender: FDA-Public Use
  Company Number: US-EPICPHARMA-US-2021EPCLIT00297

PATIENT
  Age: 17 Year
  Sex: Male

DRUGS (5)
  1. MILRINONE [Interacting]
     Active Substance: MILRINONE
     Indication: CARDIAC FAILURE
     Route: 065
  2. FUROSEMIDE. [Interacting]
     Active Substance: FUROSEMIDE
     Indication: CARDIAC FAILURE
     Route: 065
  3. EPINEPHRINE. [Interacting]
     Active Substance: EPINEPHRINE
     Indication: CARDIAC FAILURE
     Route: 065
  4. GUANFACINE. [Suspect]
     Active Substance: GUANFACINE
     Indication: ATTENTION DEFICIT HYPERACTIVITY DISORDER
     Dosage: EXTENDED RELEASE, 40 TIMES PATIENT PRESCRIBED DOSE
     Route: 048
  5. TOPIRAMATE. [Concomitant]
     Active Substance: TOPIRAMATE
     Indication: PRODUCT USED FOR UNKNOWN INDICATION
     Route: 065

REACTIONS (4)
  - Cardiac failure [Recovering/Resolving]
  - Accidental overdose [Unknown]
  - Pulmonary oedema [Unknown]
  - Respiratory distress [Unknown]
